FAERS Safety Report 4338475-9 (Version None)
Quarter: 2004Q2

REPORT INFORMATION
  Report Type: 
  Country: None (occurrence: None)
  Receive Date: 20040409
  Receipt Date: 20040304
  Transmission Date: 20050107
  Serious: Yes (Death, Hospitalization)
  Sender: FDA-Public Use
  Company Number: A02200400813

PATIENT
  Age: 78 Year
  Sex: Male

DRUGS (3)
  1. PLAVIX [Suspect]
     Indication: CEREBROVASCULAR ACCIDENT
     Dosage: 75 MG OD ORAL
     Route: 048
     Dates: start: 20040124, end: 20040201
  2. KARDEGIC - (ACETYLSALICYLATE LYSINE) - POWDER - 75 MG [Suspect]
     Indication: CEREBROVASCULAR ACCIDENT
     Dosage: 75 MG OD ORAL
     Route: 048
     Dates: start: 20040124, end: 20040201
  3. DEROXAT - (PAROXETINE HYDROCHLORIDE) - TABLET - 20 MG [Suspect]
     Indication: DEPRESSION
     Dosage: DEPRESSIVE STATE
     Dates: start: 20040120, end: 20040201

REACTIONS (7)
  - CHOLESTASIS [None]
  - CYTOLYTIC HEPATITIS [None]
  - DISSEMINATED INTRAVASCULAR COAGULATION [None]
  - HAEMATOMA [None]
  - HEPATITIS FULMINANT [None]
  - PROCEDURAL COMPLICATION [None]
  - RENAL FAILURE [None]
